FAERS Safety Report 20525897 (Version 1)
Quarter: 2022Q1

REPORT INFORMATION
  Report Type: Spontaneous
  Country: CA (occurrence: CA)
  Receive Date: 20220228
  Receipt Date: 20220228
  Transmission Date: 20220424
  Serious: Yes (Other)
  Sender: FDA-Public Use
  Company Number: None

PATIENT
  Sex: Female

DRUGS (17)
  1. METHOTREXATE [Suspect]
     Active Substance: METHOTREXATE
     Indication: Product used for unknown indication
     Dosage: 1 EVERY 1 WEEKS
  2. RITUXIMAB [Suspect]
     Active Substance: RITUXIMAB
     Indication: Product used for unknown indication
  3. BILASTINE [Concomitant]
     Active Substance: BILASTINE
     Dosage: 4 EVERY 1 DAYS
  4. BUPROPION [Concomitant]
     Active Substance: BUPROPION
     Dosage: 1 EVERY 1 DAYS
  5. CIPRALEX [Concomitant]
     Active Substance: ESCITALOPRAM OXALATE
     Dosage: 1 EVERY 1 DAYS
  6. DYMISTA [Concomitant]
     Active Substance: AZELASTINE HYDROCHLORIDE\FLUTICASONE PROPIONATE
     Dosage: SUSPENSION, SPRAY METERED DOSE, 2 EVERY 1 DAYS
  7. EPIPEN [Concomitant]
     Active Substance: EPINEPHRINE
     Dosage: SOLUTION INTRAMUSCULAR,  0.3MG/0.3ML, AUTO INJECTOR
  8. RITUXIMAB [Concomitant]
     Active Substance: RITUXIMAB
  9. HUMIRA [Concomitant]
     Active Substance: ADALIMUMAB
     Dosage: SOLUTION SUBCUTANEOUS
  10. HYDROXYCHLOROQUINE [Concomitant]
     Active Substance: HYDROXYCHLOROQUINE
  11. INFLIXIMAB [Concomitant]
     Active Substance: INFLIXIMAB
  12. LEFLUNOMIDE [Concomitant]
     Active Substance: LEFLUNOMIDE
     Dosage: 1 EVERY 1 DAYS
  13. METHOTREXATE [Concomitant]
     Active Substance: METHOTREXATE
     Dosage: 1 EVERY 1 WEEKS
     Route: 058
  14. OLOPATADINE HYDROCHLORIDE [Concomitant]
     Active Substance: OLOPATADINE HYDROCHLORIDE
  15. ABATACEPT [Concomitant]
     Active Substance: ABATACEPT
     Dosage: 1 EVERY 1 MONTHS
     Route: 042
  16. SULFASALAZINE [Concomitant]
     Active Substance: SULFASALAZINE
  17. TOFACITINIB [Concomitant]
     Active Substance: TOFACITINIB
     Dosage: 2 EVERY 1 DAYS

REACTIONS (7)
  - Fatigue [Unknown]
  - Headache [Unknown]
  - Leukopenia [Unknown]
  - Nausea [Unknown]
  - Sjogren^s syndrome [Unknown]
  - Urticarial vasculitis [Unknown]
  - Drug ineffective [Unknown]
